FAERS Safety Report 6500299-1 (Version None)
Quarter: 2009Q4

REPORT INFORMATION
  Report Type: 
  Country: None (occurrence: None)
  Receive Date: 20091127
  Receipt Date: 20081010
  Transmission Date: 20100525
  Serious: Yes (Other)
  Sender: FDA-Public Use
  Company Number: WAES 0601USA02839

PATIENT
  Age: 57 Year
  Sex: Female
  Weight: 76.6579 kg

DRUGS (2)
  1. FOSAMAX [Suspect]
     Indication: OSTEOPOROSIS
     Dosage: 70 MG/WKY/PO
     Route: 048
     Dates: start: 20010423
  2. PREMARIN [Concomitant]

REACTIONS (17)
  - ACROCHORDON [None]
  - ANXIETY [None]
  - BACK INJURY [None]
  - DEPRESSION [None]
  - EPICONDYLITIS [None]
  - FOOT FRACTURE [None]
  - IRRITABLE BOWEL SYNDROME [None]
  - ORAL CANDIDIASIS [None]
  - OSTEOARTHRITIS [None]
  - OSTEOMYELITIS [None]
  - OSTEONECROSIS [None]
  - OSTEOPENIA [None]
  - PERIODONTITIS [None]
  - POLYP COLORECTAL [None]
  - RESORPTION BONE INCREASED [None]
  - TONGUE ULCERATION [None]
  - TOOTH FRACTURE [None]
